FAERS Safety Report 13925313 (Version 1)
Quarter: 2017Q3

REPORT INFORMATION
  Report Type: Report from Study
  Country: JP (occurrence: JP)
  Receive Date: 20170831
  Receipt Date: 20170831
  Transmission Date: 20171127
  Serious: Yes (Hospitalization, Other)
  Sender: FDA-Public Use
  Company Number: PHHY2011JP26731

PATIENT
  Age: 76 Year
  Sex: Male

DRUGS (15)
  1. NEXAVAR [Concomitant]
     Active Substance: SORAFENIB
     Dosage: 800 MG, UNK
     Route: 048
     Dates: start: 20100216, end: 20101026
  2. PORTOLAC [Concomitant]
     Active Substance: LACTITOL
     Indication: PRODUCT USED FOR UNKNOWN INDICATION
     Dosage: 18 G, QD
     Route: 048
     Dates: start: 20060510
  3. NEXAVAR [Concomitant]
     Active Substance: SORAFENIB
     Indication: METASTATIC RENAL CELL CARCINOMA
     Dosage: 800 MG, QD
     Route: 048
     Dates: start: 20090519, end: 20090711
  4. AFINITOR [Suspect]
     Active Substance: EVEROLIMUS
     Indication: METASTATIC RENAL CELL CARCINOMA
     Dosage: 5 MG, QOD
     Route: 048
     Dates: start: 20101117, end: 20110201
  5. LORCAM [Concomitant]
     Active Substance: LORNOXICAM
     Dosage: 300 MG, QD
     Route: 048
  6. VOLTAREN [Concomitant]
     Active Substance: DICLOFENAC SODIUM
     Indication: METASTATIC RENAL CELL CARCINOMA
     Dosage: 50 MG, UNK
     Route: 065
     Dates: start: 20101102
  7. LASIX [Concomitant]
     Active Substance: FUROSEMIDE
     Indication: PRODUCT USED FOR UNKNOWN INDICATION
     Dosage: 80 MG, QD
     Route: 048
     Dates: start: 20060510
  8. ZYLORIC [Concomitant]
     Active Substance: ALLOPURINOL
     Indication: PRODUCT USED FOR UNKNOWN INDICATION
     Dosage: 200 MG, QD
     Route: 048
     Dates: start: 20060510
  9. LIVACT [Concomitant]
     Active Substance: AMINO ACIDS
     Indication: PRODUCT USED FOR UNKNOWN INDICATION
     Dosage: 12.45 G, QD
     Route: 048
     Dates: start: 20060510
  10. TAKEPRON [Concomitant]
     Active Substance: LANSOPRAZOLE
     Indication: PRODUCT USED FOR UNKNOWN INDICATION
     Dosage: 1.5 MG, QD
     Route: 048
     Dates: start: 20100323
  11. INNOLET N [Concomitant]
     Indication: PRODUCT USED FOR UNKNOWN INDICATION
     Dosage: 12 IU, QD
     Route: 065
     Dates: start: 20061106
  12. INNOLET 30R [Concomitant]
     Active Substance: INSULIN NOS
     Indication: PRODUCT USED FOR UNKNOWN INDICATION
     Dosage: 6 IU, QD
     Route: 065
     Dates: start: 20081015
  13. NORVASC [Concomitant]
     Active Substance: AMLODIPINE BESYLATE
     Indication: PRODUCT USED FOR UNKNOWN INDICATION
     Dosage: 5 MG, QD
     Route: 048
     Dates: start: 20060510
  14. LORCAM [Concomitant]
     Active Substance: LORNOXICAM
     Indication: PRODUCT USED FOR UNKNOWN INDICATION
     Dosage: 12 MG, QD
     Route: 048
     Dates: start: 20081015
  15. DUROTEP [Concomitant]
     Active Substance: FENTANYL
     Indication: METASTATIC RENAL CELL CARCINOMA
     Route: 065
     Dates: start: 20110114

REACTIONS (5)
  - Periodontitis [Recovered/Resolved]
  - Ascites [Recovering/Resolving]
  - Pleural effusion [Recovering/Resolving]
  - Malignant neoplasm progression [Not Recovered/Not Resolved]
  - Interstitial lung disease [Recovered/Resolved]

NARRATIVE: CASE EVENT DATE: 20101201
